FAERS Safety Report 8548057-0 (Version None)
Quarter: 2012Q3

REPORT INFORMATION
  Report Type: 
  Country: None (occurrence: None)
  Receive Date: 20120730
  Receipt Date: 20120717
  Transmission Date: 20120928
  Serious: Yes (Life-Threatening, Hospitalization, Other)
  Sender: FDA-Public Use
  Company Number: IT-AMGEN-ITASP2012042449

PATIENT
  Age: 72 Year
  Sex: Male

DRUGS (4)
  1. LIMPIDEX [Concomitant]
     Dosage: UNK
  2. ENBREL [Suspect]
     Indication: PSORIASIS
     Dosage: 50 MG, WEEKLY
     Route: 058
     Dates: start: 20111001, end: 20120501
  3. DILTIAZEM HCL [Concomitant]
     Dosage: UNK
  4. MODURETIC 5-50 [Concomitant]
     Dosage: UNK

REACTIONS (3)
  - LUNG INFECTION [None]
  - NEUROPATHY PERIPHERAL [None]
  - RESPIRATORY FAILURE [None]
